FAERS Safety Report 6932239-5 (Version None)
Quarter: 2010Q3

REPORT INFORMATION
  Report Type: 
  Country: None (occurrence: None)
  Receive Date: 20100819
  Receipt Date: 20100811
  Transmission Date: 20110219
  Serious: Yes (Other)
  Sender: FDA-Public Use
  Company Number: CA-JNJFOC-20100804450

PATIENT
  Sex: Female

DRUGS (5)
  1. SIMPONI [Suspect]
     Indication: RHEUMATOID ARTHRITIS
     Route: 058
  2. METHOTREXATE [Concomitant]
     Route: 050
  3. PLAQUENIL [Concomitant]
     Route: 048
  4. MELOXICAM [Concomitant]
     Route: 048
  5. FOLIC ACID [Concomitant]
     Route: 048

REACTIONS (2)
  - FLUID RETENTION [None]
  - WEIGHT INCREASED [None]
